FAERS Safety Report 18944648 (Version 1)
Quarter: 2021Q1

REPORT INFORMATION
  Report Type: Spontaneous
  Country: US (occurrence: US)
  Receive Date: 20210226
  Receipt Date: 20210226
  Transmission Date: 20210420
  Serious: Yes (Other)
  Sender: FDA-Public Use
  Company Number: US-TEVA-2021-US-1883946

PATIENT
  Sex: Female

DRUGS (17)
  1. VITAMIN B12 [Concomitant]
     Active Substance: CYANOCOBALAMIN
  2. TYLENOL [Concomitant]
     Active Substance: ACETAMINOPHEN
  3. MONTELUKAST [Concomitant]
     Active Substance: MONTELUKAST SODIUM
  4. COPAXONE [Suspect]
     Active Substance: GLATIRAMER ACETATE
     Indication: MULTIPLE SCLEROSIS
     Dosage: FORM STRENGTH: UNKNOWN
     Route: 065
     Dates: start: 2016
  5. DULERA [Concomitant]
     Active Substance: FORMOTEROL FUMARATE DIHYDRATE\MOMETASONE FUROATE
  6. VITAMIN D [Concomitant]
     Active Substance: VITAMIN D NOS
  7. PROVIGIL [Concomitant]
     Active Substance: MODAFINIL
  8. CLONIDINE. [Concomitant]
     Active Substance: CLONIDINE
  9. ZYRTEC [Concomitant]
     Active Substance: CETIRIZINE HYDROCHLORIDE
  10. PEPCID [Concomitant]
     Active Substance: FAMOTIDINE
  11. ALBUTEROL. [Concomitant]
     Active Substance: ALBUTEROL
  12. ELIQUIS [Concomitant]
     Active Substance: APIXABAN
  13. DIAZEPAM. [Concomitant]
     Active Substance: DIAZEPAM
  14. BUSPIRONE [Concomitant]
     Active Substance: BUSPIRONE HYDROCHLORIDE
  15. OCREVUS [Concomitant]
     Active Substance: OCRELIZUMAB
  16. OXYBUTYNIN. [Concomitant]
     Active Substance: OXYBUTYNIN CHLORIDE
  17. MOTRIN [Concomitant]
     Active Substance: IBUPROFEN

REACTIONS (2)
  - Haematoma [Unknown]
  - Multiple sclerosis relapse [Unknown]
